FAERS Safety Report 9520530 (Version 1)
Quarter: 2013Q3

REPORT INFORMATION
  Report Type: Spontaneous
  Country: CH (occurrence: CH)
  Receive Date: 20130913
  Receipt Date: 20130913
  Transmission Date: 20140515
  Serious: Yes (Other)
  Sender: FDA-Public Use
  Company Number: CH-ASTRAZENECA-2013SE67811

PATIENT
  Age: 56 Year
  Sex: Female

DRUGS (6)
  1. SEROQUEL XR [Suspect]
     Route: 048
     Dates: start: 20130730
  2. CIPRALEX [Suspect]
     Dates: start: 2011, end: 20130615
  3. CIPRALEX [Suspect]
     Route: 048
     Dates: start: 20130615
  4. CIPRALEX [Suspect]
  5. CIPRALEX [Suspect]
  6. TEMESTA [Concomitant]
     Dates: start: 201308

REACTIONS (3)
  - Condition aggravated [Not Recovered/Not Resolved]
  - Agitation [Not Recovered/Not Resolved]
  - Disturbance in attention [Unknown]
